FAERS Safety Report 15792231 (Version 2)
Quarter: 2020Q3

REPORT INFORMATION
  Report Type: Spontaneous
  Country: US (occurrence: US)
  Receive Date: 20190107
  Receipt Date: 20200817
  Transmission Date: 20201102
  Serious: No
  Sender: FDA-Public Use
  Company Number: US-ELI_LILLY_AND_COMPANY-US201901000707

PATIENT
  Age: 63 Year
  Sex: Female

DRUGS (6)
  1. JARDIANCE [Concomitant]
     Active Substance: EMPAGLIFLOZIN
     Indication: TYPE 2 DIABETES MELLITUS
     Dosage: 1 DF, DAILY
  2. TRULICITY [Suspect]
     Active Substance: DULAGLUTIDE
     Indication: TYPE 2 DIABETES MELLITUS
     Dosage: 1.5 MG, UNKNOWN
     Route: 065
     Dates: start: 201805
  3. TRULICITY [Suspect]
     Active Substance: DULAGLUTIDE
     Dosage: 1.5 MG, UNKNOWN
     Route: 065
     Dates: start: 20181223
  4. LANTUS [Concomitant]
     Active Substance: INSULIN GLARGINE
     Indication: TYPE 2 DIABETES MELLITUS
     Dosage: 20 U, EACH MORNING
  5. TRULICITY [Suspect]
     Active Substance: DULAGLUTIDE
     Indication: TYPE 2 DIABETES MELLITUS
     Dosage: 1.5 MG, UNKNOWN
     Route: 065
     Dates: start: 201805
  6. TRULICITY [Suspect]
     Active Substance: DULAGLUTIDE
     Dosage: 1.5 UNK
     Route: 065

REACTIONS (3)
  - Incorrect dose administered [Unknown]
  - Hypoglycaemia [Recovered/Resolved]
  - Accidental underdose [Unknown]

NARRATIVE: CASE EVENT DATE: 20181223
